FAERS Safety Report 8236276-2 (Version None)
Quarter: 2012Q1

REPORT INFORMATION
  Report Type: 
  Country: None (occurrence: None)
  Receive Date: 20120326
  Receipt Date: 20120326
  Transmission Date: 20120608
  Serious: Yes (Hospitalization)
  Sender: FDA-Public Use
  Company Number: None

PATIENT
  Sex: Female
  Weight: 75.91 kg

DRUGS (6)
  1. HYDROCODONE BITARTRATE [Concomitant]
  2. LORAZEPAM [Concomitant]
  3. TAXOL [Suspect]
     Dosage: 378 MG
     Dates: end: 20120301
  4. BEVACIZUMAB (RHUMAB VEGF) [Suspect]
     Dosage: 1138 MG
     Dates: end: 20120301
  5. CARBOPLATIN [Suspect]
     Dosage: 818 MG
     Dates: end: 20120301
  6. MORPHINE [Concomitant]

REACTIONS (5)
  - PYREXIA [None]
  - DYSPNOEA [None]
  - CHILLS [None]
  - ABDOMINAL PAIN [None]
  - MUSCULAR WEAKNESS [None]
